FAERS Safety Report 8079353-1 (Version None)
Quarter: 2012Q1

REPORT INFORMATION
  Report Type: 
  Country: None (occurrence: None)
  Receive Date: 20120128
  Receipt Date: 20110822
  Transmission Date: 20120608
  Serious: No
  Sender: FDA-Public Use
  Company Number: US-ABBOTT-11P-163-0848439-00

PATIENT
  Age: 27 Year
  Sex: Female

DRUGS (1)
  1. HUMIRA [Suspect]
     Indication: PSORIASIS
     Dates: start: 20110101

REACTIONS (4)
  - URINE ODOUR ABNORMAL [None]
  - FLANK PAIN [None]
  - URINE ABNORMALITY [None]
  - DYSURIA [None]
